FAERS Safety Report 5197080-5 (Version None)
Quarter: 2007Q1

REPORT INFORMATION
  Report Type: 
  Country: None (occurrence: None)
  Receive Date: 20070103
  Receipt Date: 20061221
  Transmission Date: 20070707
  Serious: Yes (Hospitalization, Other)
  Sender: FDA-Public Use
  Company Number: US-ELI_LILLY_AND_COMPANY-US200611001317

PATIENT
  Sex: Male

DRUGS (5)
  1. HUMALOG [Suspect]
     Indication: DIABETES MELLITUS
     Dosage: UNK, UNKNOWN
     Dates: start: 20061001
  2. HUMALOG [Suspect]
     Dosage: UNK, UNKNOWN
  3. HUMULIN R [Suspect]
     Indication: DIABETES MELLITUS
     Dosage: UNK, UNKNOWN
  4. LANTUS [Concomitant]
     Indication: DIABETES MELLITUS
     Dosage: UNK, UNKNOWN
  5. COUMADIN [Concomitant]
     Dosage: UNK, UNKNOWN

REACTIONS (7)
  - CHOLECYSTECTOMY [None]
  - CORONARY ARTERY DISEASE [None]
  - GALLBLADDER DISORDER [None]
  - POST PROCEDURAL HAEMORRHAGE [None]
  - SICK SINUS SYNDROME [None]
  - VEIN WALL HYPERTROPHY [None]
  - WEIGHT DECREASED [None]
